FAERS Safety Report 17044184 (Version 2)
Quarter: 2019Q4

REPORT INFORMATION
  Report Type: Spontaneous
  Country: ES (occurrence: ES)
  Receive Date: 20191118
  Receipt Date: 20191125
  Transmission Date: 20200122
  Serious: Yes (Hospitalization, Other)
  Sender: FDA-Public Use
  Company Number: ES-ABBVIE-19K-144-3002073-00

PATIENT
  Age: 66 Year
  Sex: Male

DRUGS (1)
  1. MAVIRET [Suspect]
     Active Substance: GLECAPREVIR\PIBRENTASVIR
     Indication: HEPATITIS C
     Route: 048
     Dates: start: 201910, end: 20191112

REACTIONS (7)
  - Jaundice [Unknown]
  - Retroperitoneal lymphadenopathy [Unknown]
  - Biliary tract dilation procedure [Unknown]
  - Pancreatic carcinoma metastatic [Unknown]
  - Bile duct obstruction [Unknown]
  - Blood bilirubin increased [Unknown]
  - Abdominal lymphadenopathy [Unknown]

NARRATIVE: CASE EVENT DATE: 2019
